FAERS Safety Report 4283049-1 (Version None)
Quarter: 2004Q1

REPORT INFORMATION
  Report Type: 
  Country: None (occurrence: None)
  Receive Date: 20040129
  Receipt Date: 20040121
  Transmission Date: 20041129
  Serious: No
  Sender: FDA-Public Use
  Company Number: 2004UW01049

PATIENT

DRUGS (1)
  1. IRESSA [Suspect]
     Dates: start: 20030121, end: 20040121

REACTIONS (3)
  - ABASIA [None]
  - INAPPROPRIATE ANTIDIURETIC HORMONE SECRETION [None]
  - POLYNEUROPATHY [None]
